FAERS Safety Report 21269053 (Version 1)
Quarter: 2022Q3

REPORT INFORMATION
  Report Type: Spontaneous
  Country: US (occurrence: None)
  Receive Date: 20220830
  Receipt Date: 20220830
  Transmission Date: 20221027
  Serious: Yes (Hospitalization)
  Sender: FDA-Public Use
  Company Number: US-FARMAPROD-202208-1602

PATIENT
  Sex: Female
  Weight: 84.444 kg

DRUGS (18)
  1. OXERVATE [Suspect]
     Active Substance: CENEGERMIN-BKBJ
     Indication: Neurotrophic keratopathy
     Route: 047
     Dates: start: 20220712
  2. OXERVATE [Suspect]
     Active Substance: CENEGERMIN-BKBJ
     Indication: Ulcerative keratitis
  3. METRONIDAZOLE [Concomitant]
     Active Substance: METRONIDAZOLE
  4. ALBUTEROL SULFATE [Concomitant]
     Active Substance: ALBUTEROL SULFATE
     Dosage: HYDROFLUOROALKANE AEROSOL WITH ADAPTER
  5. GABAPENTIN [Concomitant]
     Active Substance: GABAPENTIN
  6. ESCITALOPRAM OXALATE [Concomitant]
     Active Substance: ESCITALOPRAM OXALATE
  7. NITROFURANTOIN [Concomitant]
     Active Substance: NITROFURANTOIN
  8. ALENDRONATE SODIUM [Concomitant]
     Active Substance: ALENDRONATE SODIUM
  9. LOPERAMIDE [Concomitant]
     Active Substance: LOPERAMIDE
  10. NYSTATIN [Concomitant]
     Active Substance: NYSTATIN
     Dosage: 100000/G
  11. ACETAMINOPHEN\HYDROCODONE [Concomitant]
     Active Substance: ACETAMINOPHEN\HYDROCODONE
  12. OMEPRAZOLE [Concomitant]
     Active Substance: OMEPRAZOLE
     Dosage: DELAYED RELEASE
  13. TRIAMCINOLONE ACETONIDE [Concomitant]
     Active Substance: TRIAMCINOLONE ACETONIDE
  14. ONDANSETRON [Concomitant]
     Active Substance: ONDANSETRON
     Dosage: ORALLY DISSOLVING TABLET RAPIDS
  15. CARVEDILOL [Concomitant]
     Active Substance: CARVEDILOL
  16. LEVOTHYROXINE SODIUM [Concomitant]
     Active Substance: LEVOTHYROXINE SODIUM
  17. PRAMIPEXOLE DIHYDROCHLORIDE [Concomitant]
     Active Substance: PRAMIPEXOLE DIHYDROCHLORIDE
  18. POLYETHYLENE GLYCOL 3350 [Concomitant]
     Active Substance: POLYETHYLENE GLYCOL 3350

REACTIONS (1)
  - Hospitalisation [Unknown]
